FAERS Safety Report 25741547 (Version 1)
Quarter: 2025Q3

REPORT INFORMATION
  Report Type: Spontaneous
  Country: US (occurrence: US)
  Receive Date: 20250829
  Receipt Date: 20250829
  Transmission Date: 20251021
  Serious: Yes (Other)
  Sender: SANDOZ
  Company Number: US-SANDOZ-SDZ2025US061474

PATIENT
  Sex: Female

DRUGS (1)
  1. RECLAST [Suspect]
     Active Substance: ZOLEDRONIC ACID
     Indication: Product used for unknown indication
     Route: 065

REACTIONS (7)
  - Kidney infection [Unknown]
  - Renal impairment [Unknown]
  - Nausea [Unknown]
  - Vomiting [Unknown]
  - Myalgia [Unknown]
  - Decreased appetite [Unknown]
  - Pain [Unknown]
